FAERS Safety Report 9085912 (Version 1)
Quarter: 2013Q1

REPORT INFORMATION
  Report Type: Report from Study
  Country: US (occurrence: US)
  Receive Date: 20130130
  Receipt Date: 20130130
  Transmission Date: 20140127
  Serious: Yes (Hospitalization, Other)
  Sender: FDA-Public Use
  Company Number: US-ABBOTT-12P-163-0973832-00

PATIENT
  Age: 68 Year
  Sex: Female
  Weight: 75.36 kg

DRUGS (4)
  1. HUMIRA 40 MG/0.8 ML PEN [Suspect]
     Indication: RHEUMATOID ARTHRITIS
     Dates: start: 200908, end: 2010
  2. HUMIRA 40 MG/0.8 ML PEN [Suspect]
     Dates: start: 2010, end: 201111
  3. HUMIRA 40 MG/0.8 ML PEN [Suspect]
     Dates: start: 201111, end: 2012
  4. HUMIRA 40 MG/0.8 ML PEN [Suspect]
     Dates: start: 20120807

REACTIONS (9)
  - Rheumatoid arthritis [Unknown]
  - Spinal fusion surgery [Unknown]
  - Scoliosis [Unknown]
  - Post procedural discharge [Unknown]
  - Vertebral foraminal stenosis [Unknown]
  - Facet joint syndrome [Unknown]
  - Intervertebral disc protrusion [Unknown]
  - Intervertebral disc degeneration [Unknown]
  - Spondylolisthesis [Unknown]
